FAERS Safety Report 23515457 (Version 1)
Quarter: 2024Q1

REPORT INFORMATION
  Report Type: Spontaneous
  Country: CA (occurrence: CA)
  Receive Date: 20240213
  Receipt Date: 20240213
  Transmission Date: 20240409
  Serious: Yes (Death)
  Sender: FDA-Public Use
  Company Number: CA-BAYER-2024A022438

PATIENT
  Sex: Male

DRUGS (1)
  1. EYLEA [Suspect]
     Active Substance: AFLIBERCEPT
     Indication: Age-related macular degeneration
     Dosage: 40 MG (2MG) 0.05 ML; SOLUTION FOR INJECTION; STRENGTH: 40 MG/ML

REACTIONS (1)
  - Death [Fatal]

NARRATIVE: CASE EVENT DATE: 20231210
